FAERS Safety Report 4303468-4 (Version None)
Quarter: 2004Q1

REPORT INFORMATION
  Report Type: 
  Country: None (occurrence: None)
  Receive Date: 20040223
  Receipt Date: 20040212
  Transmission Date: 20041129
  Serious: Yes (Death, Life-Threatening)
  Sender: FDA-Public Use
  Company Number: 200402085

PATIENT
  Age: 53 Year
  Sex: Female
  Weight: 98.8842 kg

DRUGS (6)
  1. FLEXERIL [Suspect]
     Dosage: PO
     Route: 048
  2. ACETAMINOPHEN [Suspect]
     Indication: OSTEOARTHRITIS
     Dosage: 325 MG DAILY
     Dates: start: 20021206
  3. ELAVIL [Suspect]
     Dosage: PO
     Route: 048
  4. SULFIUM [Concomitant]
  5. BLINDED THERAPY [Concomitant]
  6. OMEPRAZOLE [Concomitant]

REACTIONS (4)
  - COMPLETED SUICIDE [None]
  - DEPRESSION [None]
  - MULTIPLE DRUG OVERDOSE [None]
  - SUDDEN DEATH [None]
